FAERS Safety Report 15074981 (Version 2)
Quarter: 2023Q4

REPORT INFORMATION
  Report Type: Spontaneous
  Country: US (occurrence: US)
  Receive Date: 20180627
  Receipt Date: 20231128
  Transmission Date: 20240110
  Serious: Yes (Other)
  Sender: FDA-Public Use
  Company Number: US-SAOL THERAPEUTICS-2017SAO01701

PATIENT
  Age: 10 Year
  Sex: Female
  Weight: 26.5 kg

DRUGS (3)
  1. BACLOFEN [Suspect]
     Active Substance: BACLOFEN
     Indication: Muscle spasticity
     Dosage: 347.8 ?G, \DAY
     Route: 037
     Dates: start: 2013
  2. TEGRETOL [Concomitant]
     Active Substance: CARBAMAZEPINE
  3. TOPIRAMATE [Concomitant]
     Active Substance: TOPIRAMATE

REACTIONS (6)
  - Therapeutic response decreased [Not Recovered/Not Resolved]
  - Tremor [Unknown]
  - Hypertonia [Unknown]
  - Device dislocation [Not Recovered/Not Resolved]
  - Device failure [Not Recovered/Not Resolved]
  - Device infusion issue [Not Recovered/Not Resolved]

NARRATIVE: CASE EVENT DATE: 20170901
